FAERS Safety Report 20146483 (Version 10)
Quarter: 2023Q2

REPORT INFORMATION
  Report Type: Report from Study
  Country: CA (occurrence: CA)
  Receive Date: 20211203
  Receipt Date: 20230626
  Transmission Date: 20230722
  Serious: Yes (Other)
  Sender: FDA-Public Use
  Company Number: CA-OTSUKA-2021_024147

PATIENT
  Sex: Female
  Weight: 61.5 kg

DRUGS (23)
  1. CEDAZURIDINE\DECITABINE [Interacting]
     Active Substance: CEDAZURIDINE\DECITABINE
     Indication: Chronic myelomonocytic leukaemia
     Dosage: (35 MG OF DECITABINE AND 100 MG OF CEDAZURIDINE)
     Route: 065
     Dates: start: 20210607
  2. CEDAZURIDINE\DECITABINE [Interacting]
     Active Substance: CEDAZURIDINE\DECITABINE
     Dosage: UNK, QD (EVERY 6 WEEKS)
     Route: 065
  3. CEDAZURIDINE\DECITABINE [Interacting]
     Active Substance: CEDAZURIDINE\DECITABINE
     Dosage: 3 TABLET PER CYCLE
     Route: 065
  4. CEDAZURIDINE\DECITABINE [Interacting]
     Active Substance: CEDAZURIDINE\DECITABINE
     Dosage: UNK, (EVERY 8 WEEKS)
     Route: 065
  5. CEDAZURIDINE\DECITABINE [Interacting]
     Active Substance: CEDAZURIDINE\DECITABINE
     Dosage: DAY 1,3,5 OF 8 WEEKS
     Route: 065
  6. ARANESP [Interacting]
     Active Substance: DARBEPOETIN ALFA
     Indication: Product used for unknown indication
     Dosage: UNK
     Route: 065
  7. RUXOLITINIB [Concomitant]
     Active Substance: RUXOLITINIB
     Indication: Product used for unknown indication
     Dosage: 1 DF, BID
     Route: 048
  8. ASPIRIN [Concomitant]
     Active Substance: ASPIRIN
     Indication: Product used for unknown indication
     Dosage: 81 MG, QD (EVERY MORNING)
     Route: 048
  9. CETIRIZINE HYDROCHLORIDE [Concomitant]
     Active Substance: CETIRIZINE HYDROCHLORIDE
     Indication: Product used for unknown indication
     Dosage: 10 MG, QD
     Route: 048
  10. CHOLECALCIFEROL [Concomitant]
     Active Substance: CHOLECALCIFEROL
     Indication: Product used for unknown indication
     Dosage: UNK UNK, QD (1000 UNITS 1 TABLET EVERY MORNING)
     Route: 048
  11. DARBEPOETIN ALFA [Concomitant]
     Active Substance: DARBEPOETIN ALFA
     Indication: Product used for unknown indication
     Dosage: UNK (150 MCG =0.3 ML EVERY 3 WEEK)
     Route: 058
  12. GLUCOSAMINE [Concomitant]
     Active Substance: GLUCOSAMINE
     Indication: Product used for unknown indication
     Dosage: 500 MG, QD (EVERY MORNING)
     Route: 048
  13. ONDANSETRON [Concomitant]
     Active Substance: ONDANSETRON
     Indication: Product used for unknown indication
     Dosage: UNK, 1 TABLET EVERY MONDAY, WEDNESDAY, FRIDAY
     Route: 048
  14. ONDANSETRON [Concomitant]
     Active Substance: ONDANSETRON
     Dosage: 8 MG (AS NECESSARY)
     Route: 065
  15. ROSUVASTATIN [Concomitant]
     Active Substance: ROSUVASTATIN
     Indication: Product used for unknown indication
     Dosage: UNK UNK, QD  QD (1 TABLET EVERY MORNING)
     Route: 048
  16. SINGULAIR [Concomitant]
     Active Substance: MONTELUKAST SODIUM
     Indication: Product used for unknown indication
     Dosage: UNK (1 TABLET EVERY MONDAY, WEDNESDAY, FRIDAY)
     Route: 048
  17. ACETAMINOPHEN [Concomitant]
     Active Substance: ACETAMINOPHEN
     Indication: Product used for unknown indication
     Dosage: UNK, Q4HR (2 TABLETS AS NECESSARY)
     Route: 048
  18. ACETAMINOPHEN [Concomitant]
     Active Substance: ACETAMINOPHEN
     Dosage: 500 MG, BID (AS NECESSARY)
     Route: 048
  19. BISMUTH SUBSALICYLATE [Concomitant]
     Active Substance: BISMUTH SUBSALICYLATE
     Indication: Product used for unknown indication
     Dosage: UNK, QD (262 MG = 14.97 ML DAILY AS NECESSARY)
     Route: 048
  20. DIMENHYDRINATE [Concomitant]
     Active Substance: DIMENHYDRINATE
     Indication: Nausea
     Dosage: UNK UNK, Q4HR (25 MG =0.5 ML AS NECESSARY)
     Route: 065
     Dates: start: 20210607
  21. DIMENHYDRINATE [Concomitant]
     Active Substance: DIMENHYDRINATE
     Indication: Vomiting
  22. VITAMIN D3 [Concomitant]
     Active Substance: CHOLECALCIFEROL
     Indication: Product used for unknown indication
     Dosage: UNK, QD (1 TABLET EVERY MORNING)
     Route: 048
  23. CYTARABINE [Concomitant]
     Active Substance: CYTARABINE
     Indication: Product used for unknown indication
     Dosage: UNK
     Route: 065

REACTIONS (13)
  - Full blood count abnormal [Unknown]
  - Tumour lysis syndrome [Recovered/Resolved]
  - White blood cell count decreased [Recovered/Resolved]
  - Platelet count decreased [Recovered/Resolved]
  - Gout [Recovered/Resolved]
  - Puncture site haemorrhage [Recovered/Resolved]
  - Body temperature increased [Unknown]
  - General physical health deterioration [Recovered/Resolved]
  - Pain in extremity [Recovered/Resolved]
  - Nausea [Unknown]
  - Inappropriate schedule of product administration [Unknown]
  - Therapy interrupted [Unknown]
  - Drug interaction [Unknown]
